FAERS Safety Report 20836429 (Version 3)
Quarter: 2023Q1

REPORT INFORMATION
  Report Type: Report from Study
  Country: CA (occurrence: CA)
  Receive Date: 20220517
  Receipt Date: 20230216
  Transmission Date: 20230417
  Serious: Yes (Other)
  Sender: FDA-Public Use
  Company Number: CA-BAUSCH-BL-2022-011585

PATIENT
  Age: 50 Year
  Sex: Female
  Weight: 88 kg

DRUGS (9)
  1. BRODALUMAB [Suspect]
     Active Substance: BRODALUMAB
     Indication: Psoriasis
     Route: 058
  2. BRODALUMAB [Suspect]
     Active Substance: BRODALUMAB
     Route: 058
  3. BRODALUMAB [Suspect]
     Active Substance: BRODALUMAB
     Route: 058
  4. BRODALUMAB [Suspect]
     Active Substance: BRODALUMAB
     Route: 058
  5. METHOTREXATE [Suspect]
     Active Substance: METHOTREXATE
     Indication: Psoriasis
     Route: 065
  6. METHOTREXATE [Suspect]
     Active Substance: METHOTREXATE
     Indication: Arthralgia
     Route: 065
  7. CELECOXIB [Concomitant]
     Active Substance: CELECOXIB
     Indication: Product used for unknown indication
     Route: 048
  8. FOLIC ACID [Concomitant]
     Active Substance: FOLIC ACID
     Indication: Arthralgia
     Dosage: NOT SPECIFIED.
  9. CELEBREX [Concomitant]
     Active Substance: CELECOXIB
     Indication: Product used for unknown indication
     Route: 065

REACTIONS (20)
  - Blood pressure increased [Not Recovered/Not Resolved]
  - Body temperature decreased [Not Recovered/Not Resolved]
  - Feeling abnormal [Not Recovered/Not Resolved]
  - Gait disturbance [Not Recovered/Not Resolved]
  - Hepatic lesion [Not Recovered/Not Resolved]
  - Liver function test increased [Not Recovered/Not Resolved]
  - Onychalgia [Not Recovered/Not Resolved]
  - Polyp [Not Recovered/Not Resolved]
  - Skin laceration [Not Recovered/Not Resolved]
  - Stress [Not Recovered/Not Resolved]
  - Pruritus [Not Recovered/Not Resolved]
  - Fall [Not Recovered/Not Resolved]
  - Meniscus injury [Not Recovered/Not Resolved]
  - Injection site mass [Not Recovered/Not Resolved]
  - Injection site urticaria [Not Recovered/Not Resolved]
  - Injection site pain [Not Recovered/Not Resolved]
  - Injection site bruising [Not Recovered/Not Resolved]
  - Drug ineffective [Unknown]
  - Patient dissatisfaction with treatment [Unknown]
  - Drug ineffective for unapproved indication [Unknown]
